FAERS Safety Report 5734066-3 (Version None)
Quarter: 2008Q2

REPORT INFORMATION
  Report Type: 
  Country: None (occurrence: None)
  Receive Date: 20080509
  Receipt Date: 20080430
  Transmission Date: 20081010
  Serious: Yes (Other)
  Sender: FDA-Public Use
  Company Number: BR-PFIZER INC-2008038391

PATIENT
  Sex: Female

DRUGS (3)
  1. XALATAN [Suspect]
     Indication: DEVELOPMENTAL GLAUCOMA
     Route: 047
  2. COSOPT [Concomitant]
  3. ALPHAGAN [Concomitant]

REACTIONS (2)
  - BLINDNESS [None]
  - INTRAOCULAR PRESSURE INCREASED [None]
